FAERS Safety Report 6390213-4 (Version None)
Quarter: 2009Q4

REPORT INFORMATION
  Report Type: 
  Country: None (occurrence: None)
  Receive Date: 20091006
  Receipt Date: 20090930
  Transmission Date: 20100525
  Serious: Yes (Hospitalization)
  Sender: FDA-Public Use
  Company Number: A0810205A

PATIENT
  Sex: Male
  Weight: 60 kg

DRUGS (3)
  1. SERETIDE [Suspect]
     Indication: ASTHMA
     Dosage: 2PUFF TWICE PER DAY
     Route: 055
     Dates: start: 20081001
  2. CEFALEXINE [Concomitant]
     Dosage: 1TAB THREE TIMES PER DAY
     Route: 048
     Dates: start: 20090826
  3. NITROFURANTOIN [Concomitant]
     Dosage: 100MGD PER DAY

REACTIONS (4)
  - BRONCHITIS [None]
  - CEREBRAL ISCHAEMIA [None]
  - PATHOGEN RESISTANCE [None]
  - URINARY TRACT INFECTION [None]
